FAERS Safety Report 16992998 (Version 1)
Quarter: 2019Q4

REPORT INFORMATION
  Report Type: Spontaneous
  Country: CZ (occurrence: CZ)
  Receive Date: 20191105
  Receipt Date: 20191105
  Transmission Date: 20200122
  Serious: Yes (Life-Threatening, Hospitalization, Other)
  Sender: FDA-Public Use
  Company Number: CZ-PFIZER INC-2019471160

PATIENT
  Age: 68 Year
  Sex: Male
  Weight: 48 kg

DRUGS (13)
  1. CEFOBID [Suspect]
     Active Substance: CEFOPERAZONE
     Indication: CHOLECYSTITIS
     Dosage: 1 G, 2X/DAY (A 12 HOD 1-0-1 I.V. WITH 100ML SALINE FOR 60 MINUTES, 2X/DAY)
     Route: 042
     Dates: start: 20191002, end: 20191014
  2. NAHCO3 [Concomitant]
     Active Substance: SODIUM BICARBONATE
     Indication: RENAL FAILURE
     Dosage: 0.5 G, 3X/DAY 2-2-2, 3X/DAY
     Route: 048
  3. CLOPIDOGREL [Concomitant]
     Active Substance: CLOPIDOGREL BISULFATE
     Indication: CEREBROVASCULAR ACCIDENT
     Dosage: 75 MG, 1X/DAY 0-1-0, 1X/DAY
  4. NOLPAZA [Concomitant]
     Active Substance: PANTOPRAZOLE SODIUM
     Indication: PROPHYLAXIS
     Dosage: 20 MG, 1X/DAY 1-0-0, 1X/DAY
     Route: 048
  5. METRONIDAZOLUM [Concomitant]
     Indication: CHOLECYSTITIS
     Dosage: 500 MG, 3X/DAY 1-1-1, 3X/DAY
     Route: 042
     Dates: start: 20191002, end: 20191014
  6. AFITEN [Concomitant]
     Indication: HYPERTENSION
     Dosage: 10 MG, 1X/DAY 1-0-0, 1X/DAY
     Route: 048
  7. ACECOR [Concomitant]
     Indication: HYPERTENSION
     Dosage: 200 MG, 1X/DAY 1-0-0, 1X/DAY
     Route: 048
  8. ACECOR [Concomitant]
     Indication: CARDIAC FAILURE
  9. HIDRASEC [Concomitant]
     Active Substance: RACECADOTRIL
     Dosage: 100 MG, 3X/DAY 1-1-1, 3X/DAY
     Route: 048
  10. NAHCO3 [Concomitant]
     Active Substance: SODIUM BICARBONATE
     Indication: ACIDOSIS
  11. VESSEL DUE [Concomitant]
     Active Substance: SULODEXIDE
     Dosage: 250 MG, 2X/DAY 1-0-1, 2X/DAY
     Route: 048
  12. ZALDIAR [Concomitant]
     Active Substance: ACETAMINOPHEN\TRAMADOL HYDROCHLORIDE
     Indication: PAIN
     Dosage: 400 MG, UNK
     Route: 048
  13. TRITACE [Concomitant]
     Active Substance: RAMIPRIL
     Indication: HYPERTENSION
     Dosage: 5 MG, 1X/DAY 1-0-0, 1X/DAY
     Route: 048

REACTIONS (4)
  - Coagulopathy [Recovering/Resolving]
  - Hepatic haematoma [Recovering/Resolving]
  - Peritoneal haemorrhage [Recovering/Resolving]
  - Blood loss anaemia [Recovering/Resolving]

NARRATIVE: CASE EVENT DATE: 20191014
